FAERS Safety Report 18975116 (Version 1)
Quarter: 2021Q1

REPORT INFORMATION
  Report Type: Report from Study
  Country: None (occurrence: US)
  Receive Date: 20210306
  Receipt Date: 20210306
  Transmission Date: 20210420
  Serious: Yes (Other)
  Sender: FDA-Public Use
  Company Number: US-ABBVIE-21K-163-3732587-00

PATIENT
  Age: 48 Year
  Sex: Female

DRUGS (1)
  1. HUMIRA [Suspect]
     Active Substance: ADALIMUMAB
     Indication: CROHN^S DISEASE
     Route: 058

REACTIONS (15)
  - Menorrhagia [Not Recovered/Not Resolved]
  - Arthralgia [Not Recovered/Not Resolved]
  - Blood iron decreased [Unknown]
  - Injection site pruritus [Recovered/Resolved]
  - Metrorrhagia [Not Recovered/Not Resolved]
  - Iron deficiency [Recovered/Resolved]
  - Injection site papule [Recovering/Resolving]
  - Inhibitory drug interaction [Not Recovered/Not Resolved]
  - Injection site erythema [Recovering/Resolving]
  - Injection site urticaria [Not Recovered/Not Resolved]
  - COVID-19 [Recovered/Resolved]
  - Anaemia [Recovered/Resolved]
  - Back disorder [Unknown]
  - Pain in extremity [Unknown]
  - Asthma [Recovered/Resolved]

NARRATIVE: CASE EVENT DATE: 202007
